FAERS Safety Report 24178220 (Version 8)
Quarter: 2024Q4

REPORT INFORMATION
  Report Type: Spontaneous
  Country: US (occurrence: US)
  Receive Date: 20240806
  Receipt Date: 20241218
  Transmission Date: 20250115
  Serious: Yes (Other)
  Sender: CSL BEHRING
  Company Number: US-BEH-2024176236

PATIENT
  Age: 18 Year
  Sex: Male
  Weight: 82.8 kg

DRUGS (7)
  1. HEMGENIX [Suspect]
     Active Substance: ETRANACOGENE DEZAPARVOVEC
     Indication: Factor IX deficiency
     Dosage: UNK
     Route: 042
     Dates: start: 20240710
  2. HEMGENIX [Suspect]
     Active Substance: ETRANACOGENE DEZAPARVOVEC
     Indication: Factor IX deficiency
     Dosage: 17 VIALS
     Route: 042
     Dates: start: 20240712, end: 20240712
  3. TYLENOL [Concomitant]
     Active Substance: ACETAMINOPHEN
     Indication: Pyrexia
     Dosage: UNK UNK, PRN
     Route: 048
     Dates: start: 20240721
  4. TYLENOL [Concomitant]
     Active Substance: ACETAMINOPHEN
     Indication: Pain
     Dosage: UNK
     Route: 048
     Dates: start: 20240724
  5. CREATINE [Concomitant]
     Active Substance: CREATINE
     Indication: Muscle strength abnormal
     Dosage: UNK, QD
  6. CREATINE [Concomitant]
     Active Substance: CREATINE
     Indication: Muscle mass
  7. VICKS NYQUIL [Concomitant]
     Active Substance: ACETAMINOPHEN\DEXTROMETHORPHAN HYDROBROMIDE\DOXYLAMINE SUCCINATE
     Dosage: 1 DF

REACTIONS (11)
  - Drug ineffective [Unknown]
  - Therapeutic response decreased [Unknown]
  - Pain [Recovered/Resolved]
  - Pain [Recovered/Resolved]
  - Asthenia [Recovered/Resolved]
  - Malaise [Recovered/Resolved]
  - Pyrexia [Recovered/Resolved]
  - Headache [Recovered/Resolved]
  - Liver function test increased [Unknown]
  - Hypertransaminasaemia [Unknown]
  - Contusion [Unknown]

NARRATIVE: CASE EVENT DATE: 20240101
